FAERS Safety Report 14318135 (Version 1)
Quarter: 2017Q4

REPORT INFORMATION
  Report Type: Spontaneous
  Country: GB (occurrence: GB)
  Receive Date: 20171222
  Receipt Date: 20171222
  Transmission Date: 20180321
  Serious: Yes (Hospitalization)
  Sender: FDA-Public Use
  Company Number: GB-ELI_LILLY_AND_COMPANY-GB201712008179

PATIENT
  Sex: Male

DRUGS (1)
  1. OLARATUMAB [Suspect]
     Active Substance: OLARATUMAB
     Indication: PRODUCT USED FOR UNKNOWN INDICATION
     Dosage: UNK UNK, CYCLICAL
     Route: 065

REACTIONS (2)
  - Immune system disorder [Unknown]
  - Encephalitis [Unknown]
